FAERS Safety Report 5225770-4 (Version None)
Quarter: 2007Q1

REPORT INFORMATION
  Report Type: 
  Country: None (occurrence: None)
  Receive Date: 20070201
  Receipt Date: 20070119
  Transmission Date: 20070707
  Serious: Yes (Hospitalization)
  Sender: FDA-Public Use
  Company Number: GB-DENTSPLY-2007-0015-EUR

PATIENT
  Age: 33 Year
  Sex: Female

DRUGS (5)
  1. XYLOCAINE [Suspect]
     Dates: start: 20061019, end: 20061019
  2. UNSPECIFIED BLOOD PRESSURE MEDICATION [Concomitant]
  3. UNSPECIFIED CHOLESTEROL MEDICATION [Concomitant]
  4. ASPIRIN [Concomitant]
  5. LEVOTHYROXINE SODIUM [Concomitant]

REACTIONS (1)
  - PALPITATIONS [None]
